FAERS Safety Report 7398014-5 (Version None)
Quarter: 2011Q2

REPORT INFORMATION
  Report Type: 
  Country: None (occurrence: None)
  Receive Date: 20110406
  Receipt Date: 20110331
  Transmission Date: 20111010
  Serious: Yes (Other)
  Sender: FDA-Public Use
  Company Number: GB-GENZYME-CAMP-1001511

PATIENT
  Age: 12 Month
  Sex: Male

DRUGS (8)
  1. BUSULFAN [Suspect]
     Indication: MUCOPOLYSACCHARIDOSIS I
  2. CAMPATH [Suspect]
     Indication: MUCOPOLYSACCHARIDOSIS
     Dosage: 1 MG/KG, UNK
     Route: 042
  3. CYCLOPHOSPHAMIDE [Suspect]
     Indication: MUCOPOLYSACCHARIDOSIS I
  4. BUSULFAN [Suspect]
     Indication: STEM CELL TRANSPLANT
     Route: 042
  5. CAMPATH [Suspect]
     Indication: STEM CELL TRANSPLANT
  6. CYCLOPHOSPHAMIDE [Suspect]
     Indication: STEM CELL TRANSPLANT
     Dosage: 200 MG/KG, UNK
     Route: 042
  7. CYCLOSPORINE [Concomitant]
     Indication: PROPHYLAXIS AGAINST GRAFT VERSUS HOST DISEASE
     Route: 065
  8. MYCOPHENOLATE MOFETIL [Concomitant]
     Indication: PROPHYLAXIS AGAINST GRAFT VERSUS HOST DISEASE
     Route: 065

REACTIONS (4)
  - RESPIRATORY FAILURE [None]
  - PNEUMONIA RESPIRATORY SYNCYTIAL VIRAL [None]
  - PNEUMOTHORAX [None]
  - CARDIAC TAMPONADE [None]
